FAERS Safety Report 8905368 (Version 2)
Quarter: 2012Q4

REPORT INFORMATION
  Report Type: 
  Country: ZA (occurrence: ZA)
  Receive Date: 20121113
  Receipt Date: 20121204
  Transmission Date: 20130627
  Serious: Yes (Other)
  Sender: FDA-Public Use
  Company Number: ZA-ELI_LILLY_AND_COMPANY-ZA201211003273

PATIENT
  Sex: Male
  Weight: 98 kg

DRUGS (5)
  1. HUMULIN NPH [Suspect]
     Indication: DIABETES MELLITUS
     Dosage: 7 u, each morning
     Route: 058
     Dates: start: 20120628, end: 20120910
  2. HUMULIN NPH [Suspect]
     Dosage: 12 u, each evening
     Route: 058
     Dates: start: 20120628, end: 20120910
  3. PREXUM [Concomitant]
     Indication: HYPERTENSION
     Dosage: 10 mg, UNK
     Route: 048
     Dates: start: 201010, end: 20120910
  4. DIAMICRON [Concomitant]
     Indication: DIABETES MELLITUS
     Dosage: 30 mg, UNK
     Route: 048
     Dates: start: 201010, end: 20120910
  5. AMILORETIC [Concomitant]
     Indication: DIURETIC THERAPY
     Dosage: 100 mg, UNK
     Route: 048
     Dates: start: 201010, end: 20120910

REACTIONS (4)
  - Stent placement [Recovered/Resolved]
  - Muscle spasms [Recovered/Resolved]
  - Hypoaesthesia [Recovered/Resolved]
  - Weight decreased [Recovered/Resolved]
